FAERS Safety Report 6180372-0 (Version None)
Quarter: 2009Q2

REPORT INFORMATION
  Report Type: 
  Country: None (occurrence: None)
  Receive Date: 20090506
  Receipt Date: 20090424
  Transmission Date: 20091009
  Serious: Yes (Other)
  Sender: FDA-Public Use
  Company Number: ES-PFIZER INC-2008071289

PATIENT

DRUGS (8)
  1. BLINDED *PLACEBO [Suspect]
     Indication: COLORECTAL CANCER
     Dosage: 37.5 MG, 1X/DAY
     Route: 048
     Dates: start: 20071113, end: 20080818
  2. BLINDED SUNITINIB MALATE [Suspect]
     Indication: COLORECTAL CANCER
     Dosage: 37.5 MG, 1X/DAY
     Route: 048
     Dates: start: 20071113, end: 20080818
  3. IRINOTECAN HYDROCHLORIDE [Suspect]
     Indication: COLORECTAL CANCER
     Dosage: 270 MG, EVERY 2 WEEKS
     Route: 042
     Dates: start: 20071113, end: 20080724
  4. FLUOROURACIL [Suspect]
     Indication: COLORECTAL CANCER
     Dosage: 600 MG, EVERY 2 WEEKS
     Route: 040
     Dates: start: 20071113, end: 20080724
  5. FLUOROURACIL [Suspect]
     Dosage: 3600 MG, EVERY 2 WEEKS
     Route: 041
     Dates: start: 20071112, end: 20080724
  6. CALCIUM FOLINATE [Suspect]
     Indication: COLORECTAL CANCER
     Dosage: 600 MG, EVERY 2 WEEKS
     Route: 042
     Dates: start: 20071113, end: 20080724
  7. DEXKETOPROFEN [Concomitant]
     Dates: start: 20080715
  8. OMEPRAZOLE [Concomitant]
     Dates: start: 20080715

REACTIONS (1)
  - HYPOTHYROIDISM [None]
